FAERS Safety Report 8572654-X (Version None)
Quarter: 2012Q3

REPORT INFORMATION
  Report Type: 
  Country: None (occurrence: None)
  Receive Date: 20120806
  Receipt Date: 20120724
  Transmission Date: 20120928
  Serious: Yes (Disabling)
  Sender: FDA-Public Use
  Company Number: US-MERCK-1207HRV010801

PATIENT

DRUGS (1)
  1. PROPECIA [Suspect]
     Indication: ALOPECIA
     Dosage: UNK, QD
     Route: 048
     Dates: start: 20080101

REACTIONS (16)
  - HORMONE LEVEL ABNORMAL [None]
  - SUICIDAL IDEATION [None]
  - PANIC ATTACK [None]
  - IMPAIRED WORK ABILITY [None]
  - FEMINISATION ACQUIRED [None]
  - PENIS DISORDER [None]
  - HOMELESS [None]
  - SOCIAL PROBLEM [None]
  - GENDER IDENTITY DISORDER [None]
  - LOSS OF LIBIDO [None]
  - DRUG INEFFECTIVE [None]
  - ERECTILE DYSFUNCTION [None]
  - ANXIETY [None]
  - COGNITIVE DISORDER [None]
  - DISTURBANCE IN ATTENTION [None]
  - DEPRESSION [None]
